FAERS Safety Report 23553721 (Version 2)
Quarter: 2024Q1

REPORT INFORMATION
  Report Type: Spontaneous
  Country: CA (occurrence: CA)
  Receive Date: 20240222
  Receipt Date: 20240227
  Transmission Date: 20240409
  Serious: Yes (Life-Threatening, Hospitalization, Other)
  Sender: FDA-Public Use
  Company Number: CA-TEVA-VS-3158555

PATIENT
  Sex: Female

DRUGS (6)
  1. LEVETIRACETAM [Suspect]
     Active Substance: LEVETIRACETAM
     Indication: Dyskinesia
     Route: 065
  2. LORAZEPAM [Suspect]
     Active Substance: LORAZEPAM
     Indication: Dyskinesia
     Dosage: TIME INTERVAL: TOTAL: DOSE FORM; NOT SPECIFIED
     Route: 065
  3. ATROPINE [Concomitant]
     Active Substance: ATROPINE\ATROPINE SULFATE
     Indication: Endotracheal intubation
     Route: 065
  4. FENTANYL [Concomitant]
     Active Substance: FENTANYL\FENTANYL CITRATE
     Indication: Endotracheal intubation
     Dosage: DOSE FORM: NOT SPECIFIED
     Route: 065
  5. SUCCINYLCHOLINE [Concomitant]
     Active Substance: SUCCINYLCHOLINE
     Indication: Endotracheal intubation
     Route: 065
  6. PHENOBARBITAL [Suspect]
     Active Substance: PHENOBARBITAL
     Indication: Dyskinesia
     Dosage: TIME INTERVAL: TOTAL: DOSE FORM: NOT SPECIFIED
     Route: 065

REACTIONS (3)
  - Apnoea [Unknown]
  - Respiratory failure [Unknown]
  - Off label use [Unknown]
